FAERS Safety Report 9416749 (Version 2)
Quarter: 2013Q3

REPORT INFORMATION
  Report Type: Report from Study
  Country: FR (occurrence: FR)
  Receive Date: 20130724
  Receipt Date: 20130726
  Transmission Date: 20140515
  Serious: Yes (Death, Hospitalization)
  Sender: FDA-Public Use
  Company Number: FR-ROCHE-1250522

PATIENT
  Age: 72 Year
  Sex: Male
  Weight: 109 kg

DRUGS (7)
  1. BEVACIZUMAB [Suspect]
     Indication: BRAIN NEOPLASM MALIGNANT
     Dosage: DATE RECEIVED PRIOR TO SAE: 05/JUN/2013
     Route: 042
     Dates: start: 20130327, end: 20130618
  2. LOMUSTINE [Suspect]
     Indication: BRAIN NEOPLASM MALIGNANT
     Dosage: DATE RECEIVED PRIOR TO SAE: 13/FEB/2013
     Route: 048
     Dates: start: 20130213, end: 20130618
  3. ALLOPURINOL [Concomitant]
     Indication: HYPERURICAEMIA
     Route: 048
     Dates: end: 20130722
  4. PROPRANOLOL [Concomitant]
     Indication: HYPERTENSION
     Route: 048
     Dates: end: 20130722
  5. SIMVASTATIN [Concomitant]
     Indication: HYPERCHOLESTEROLAEMIA
     Route: 048
     Dates: end: 20130722
  6. INNOHEP [Concomitant]
     Indication: PHLEBITIS
     Route: 058
     Dates: start: 20130513, end: 20130722
  7. SOLUPRED (FRANCE) [Concomitant]
     Indication: BRAIN OEDEMA
     Route: 048
     Dates: start: 20130618, end: 20130722

REACTIONS (1)
  - Performance status decreased [Fatal]
